FAERS Safety Report 6697791-6 (Version None)
Quarter: 2010Q2

REPORT INFORMATION
  Report Type: 
  Country: None (occurrence: None)
  Receive Date: 20100423
  Receipt Date: 20100414
  Transmission Date: 20101027
  Serious: Yes (Life-Threatening, Hospitalization)
  Sender: FDA-Public Use
  Company Number: TCI2010A01174

PATIENT
  Age: 60 Year
  Sex: Male

DRUGS (5)
  1. PREVPAC [Suspect]
     Indication: HELICOBACTER INFECTION
     Dosage: 1 CARD (0.5 CARD, 2 IN 1 D), PER ORAL
     Route: 048
     Dates: start: 20100320, end: 20100326
  2. ECARD [Concomitant]
  3. HD (CANDESARTAN CILEXETIL, HYDROCHLOROTHIAZIDE) [Concomitant]
  4. NEOMALLERMIN (CHLORPHENIRAMINE MALEATE) [Concomitant]
  5. CLONAZEPAM [Concomitant]

REACTIONS (10)
  - ABDOMINAL DISTENSION [None]
  - BLOOD CREATININE INCREASED [None]
  - DEHYDRATION [None]
  - DIAPHRAGMATIC DISORDER [None]
  - DIARRHOEA [None]
  - DYSPNOEA [None]
  - FAECAL INCONTINENCE [None]
  - FAECES DISCOLOURED [None]
  - HYPERAMYLASAEMIA [None]
  - VOMITING [None]
